FAERS Safety Report 5079289-4 (Version None)
Quarter: 2006Q3

REPORT INFORMATION
  Report Type: 
  Country: None (occurrence: None)
  Receive Date: 20060808
  Receipt Date: 20060726
  Transmission Date: 20061208
  Serious: Yes (Other)
  Sender: FDA-Public Use
  Company Number: 2006091379

PATIENT
  Sex: 0

DRUGS (1)
  1. VIAGRA [Suspect]
     Indication: ERECTILE DYSFUNCTION

REACTIONS (5)
  - ASTIGMATISM [None]
  - CONDITION AGGRAVATED [None]
  - DIPLOPIA [None]
  - SCHIZOPHRENIA [None]
  - VISUAL ACUITY REDUCED [None]
